FAERS Safety Report 21303333 (Version 2)
Quarter: 2022Q3

REPORT INFORMATION
  Report Type: Report from Study
  Country: US (occurrence: US)
  Receive Date: 20220907
  Receipt Date: 20220908
  Transmission Date: 20221027
  Serious: Yes (Hospitalization)
  Sender: FDA-Public Use
  Company Number: US-JNJFOC-20220900040

PATIENT
  Age: 15 Year
  Sex: Female
  Weight: 55.3 kg

DRUGS (34)
  1. INFLIXIMAB [Suspect]
     Active Substance: INFLIXIMAB
     Indication: Inflammatory bowel disease
     Route: 041
     Dates: start: 20170424, end: 201903
  2. SODIUM CHLORIDE [Concomitant]
     Active Substance: SODIUM CHLORIDE
     Dosage: INHALATION 3%
  3. SODIUM FLUORIDE [Concomitant]
     Active Substance: SODIUM FLUORIDE
  4. PILOCARPINE HYDROCHLORIDE [Concomitant]
     Active Substance: PILOCARPINE HYDROCHLORIDE
  5. ETONOGESTREL [Concomitant]
     Active Substance: ETONOGESTREL
  6. DORNASE ALFA [Concomitant]
     Active Substance: DORNASE ALFA
  7. POSACONAZOLE [Concomitant]
     Active Substance: POSACONAZOLE
  8. CYANOCOBALAMIN [Concomitant]
     Active Substance: CYANOCOBALAMIN
  9. IVIGLOB EX [Concomitant]
     Active Substance: HUMAN IMMUNOGLOBULIN G
  10. TRAZODONE HCL [Concomitant]
     Active Substance: TRAZODONE HYDROCHLORIDE
  11. CETIRIZINE HCL [Concomitant]
     Active Substance: CETIRIZINE HYDROCHLORIDE
  12. ALBUTEROL [Concomitant]
     Active Substance: ALBUTEROL
  13. DEXLANSOPRAZOLE [Concomitant]
     Active Substance: DEXLANSOPRAZOLE
  14. MELATONIN [Concomitant]
     Active Substance: MELATONIN
  15. CELECOXIB [Concomitant]
     Active Substance: CELECOXIB
  16. DEXTROAMPHETAMINE [Concomitant]
     Active Substance: DEXTROAMPHETAMINE
  17. CETIRIZINE [Concomitant]
     Active Substance: CETIRIZINE HYDROCHLORIDE
  18. EPINEPHRINE [Concomitant]
     Active Substance: EPINEPHRINE
  19. ONDANSETRON [Concomitant]
     Active Substance: ONDANSETRON
  20. RIZATRIPTAN BENZOATE [Concomitant]
     Active Substance: RIZATRIPTAN BENZOATE
  21. MOMETASONE [Concomitant]
     Active Substance: MOMETASONE
  22. MIDODRINE [Concomitant]
     Active Substance: MIDODRINE
  23. DESMOPRESSIN [Concomitant]
     Active Substance: DESMOPRESSIN
  24. DICYCLOMINE [Concomitant]
     Active Substance: DICYCLOMINE HYDROCHLORIDE
  25. MONTELUKAST [Concomitant]
     Active Substance: MONTELUKAST SODIUM
  26. DEXTROAMPHETAMINE [Concomitant]
     Active Substance: DEXTROAMPHETAMINE
  27. SERTRALINE [Concomitant]
     Active Substance: SERTRALINE HYDROCHLORIDE
  28. RIFAXIMIN [Concomitant]
     Active Substance: RIFAXIMIN
  29. IRON [Concomitant]
     Active Substance: IRON
  30. MESALAMINE [Concomitant]
     Active Substance: MESALAMINE
     Route: 048
  31. POLYETHYLENE GLYCOLS [Concomitant]
     Active Substance: POLYETHYLENE GLYCOLS
  32. IBREXAFUNGERP [Concomitant]
     Active Substance: IBREXAFUNGERP
  33. TRIAMCINOLONE ACETONIDE [Concomitant]
     Active Substance: TRIAMCINOLONE ACETONIDE
  34. MINOXIDIL [Concomitant]
     Active Substance: MINOXIDIL

REACTIONS (2)
  - Interstitial lung disease [Recovered/Resolved]
  - Pneumothorax [Recovered/Resolved]

NARRATIVE: CASE EVENT DATE: 20211203
